FAERS Safety Report 5246875-8 (Version None)
Quarter: 2007Q1

REPORT INFORMATION
  Report Type: 
  Country: None (occurrence: None)
  Receive Date: 20070226
  Receipt Date: 20070219
  Transmission Date: 20070707
  Serious: Yes (Hospitalization, Other)
  Sender: FDA-Public Use
  Company Number: FRWYE720119FEB07

PATIENT
  Sex: Male

DRUGS (4)
  1. ADVIL [Suspect]
     Indication: TONSILLITIS
     Dosage: UNKNOWN
     Route: 048
     Dates: start: 20070121, end: 20070123
  2. ADVIL [Suspect]
     Indication: OTITIS MEDIA ACUTE
  3. ZECLAR [Suspect]
     Indication: OTITIS MEDIA ACUTE
     Dosage: UNKNOWN
     Route: 048
     Dates: start: 20070122, end: 20070123
  4. ZECLAR [Suspect]
     Indication: TONSILLITIS

REACTIONS (4)
  - HAEMOGLOBIN DECREASED [None]
  - INSOMNIA [None]
  - MASTOIDITIS [None]
  - OTORRHOEA [None]
